FAERS Safety Report 10622309 (Version 1)
Quarter: 2014Q4

REPORT INFORMATION
  Report Type: Spontaneous
  Country: US (occurrence: None)
  Receive Date: 20141201
  Receipt Date: 20141201
  Transmission Date: 20150529
  Serious: Yes (Life-Threatening, Other)
  Sender: FDA-Public Use
  Company Number: None

PATIENT
  Age: 57 Year
  Sex: Male
  Weight: 77.5 kg

DRUGS (12)
  1. PERCOCET [Concomitant]
     Active Substance: ACETAMINOPHEN\OXYCODONE HYDROCHLORIDE
  2. DEXAMETHASONE. [Concomitant]
     Active Substance: DEXAMETHASONE
  3. OMEPRAZOLE. [Concomitant]
     Active Substance: OMEPRAZOLE
  4. REGLAN [Concomitant]
     Active Substance: METOCLOPRAMIDE HYDROCHLORIDE
  5. LORAZEPAM. [Concomitant]
     Active Substance: LORAZEPAM
  6. MARINOL 2.5MG [Concomitant]
  7. ZOFRAN [Concomitant]
     Active Substance: ONDANSETRON HYDROCHLORIDE
  8. CHLORPROMAZINE [Concomitant]
     Active Substance: CHLORPROMAZINE
  9. TESSALON [Concomitant]
     Active Substance: BENZONATATE
  10. KEYTRUDA [Suspect]
     Active Substance: PEMBROLIZUMAB
     Indication: METASTATIC MALIGNANT MELANOMA
     Dosage: 172MG, EVERY 21 DAYS INTRAVENOUS
     Route: 042
  11. MS CONTIN [Concomitant]
     Active Substance: MORPHINE SULFATE
  12. DILAUDID [Concomitant]
     Active Substance: HYDROMORPHONE HYDROCHLORIDE

REACTIONS (9)
  - Fatigue [None]
  - Blood lactate dehydrogenase increased [None]
  - Decreased appetite [None]
  - Weight decreased [None]
  - Abdominal pain upper [None]
  - Blood bilirubin increased [None]
  - Nausea [None]
  - Hyponatraemia [None]
  - Cholestasis [None]

NARRATIVE: CASE EVENT DATE: 20141111
